FAERS Safety Report 9885963 (Version 1)
Quarter: 2014Q1

REPORT INFORMATION
  Report Type: Report from Study
  Country: US (occurrence: US)
  Receive Date: 20140210
  Receipt Date: 20140210
  Transmission Date: 20141002
  Serious: Yes (Other)
  Sender: FDA-Public Use
  Company Number: PHEH2014US002687

PATIENT
  Sex: Male

DRUGS (1)
  1. STI571 [Suspect]
     Dosage: 400 MG, QD
     Route: 048

REACTIONS (2)
  - Accident [Unknown]
  - Tendon rupture [Unknown]
